FAERS Safety Report 4938928-6 (Version None)
Quarter: 2006Q1

REPORT INFORMATION
  Report Type: 
  Country: None (occurrence: None)
  Receive Date: 20060309
  Receipt Date: 20051130
  Transmission Date: 20060701
  Serious: Yes (Life-Threatening, Hospitalization)
  Sender: FDA-Public Use
  Company Number: JP-MERCK-0512USA00433

PATIENT
  Age: 79 Year
  Sex: Female
  Weight: 59 kg

DRUGS (2)
  1. CLINORIL [Suspect]
     Indication: OSTEOARTHRITIS
     Route: 048
     Dates: start: 20050601, end: 20050601
  2. CLINORIL [Suspect]
     Route: 048
     Dates: start: 20050501

REACTIONS (3)
  - ANAPHYLACTIC SHOCK [None]
  - CHOLANGITIS [None]
  - GASTROINTESTINAL MUCOSAL DISORDER [None]
